FAERS Safety Report 8490665-X (Version None)
Quarter: 2012Q3

REPORT INFORMATION
  Report Type: 
  Country: None (occurrence: None)
  Receive Date: 20120705
  Receipt Date: 20120626
  Transmission Date: 20120928
  Serious: Yes (Death, Other)
  Sender: FDA-Public Use
  Company Number: GB-CELGENEUS-167-20785-12063678

PATIENT

DRUGS (6)
  1. CYCLOPHOSPHAMIDE [Concomitant]
     Indication: MULTIPLE MYELOMA
     Dosage: 57.1429 MILLIGRAM/SQ. METER
     Route: 065
     Dates: start: 20040901, end: 20080801
  2. NEUPOGEN [Concomitant]
     Indication: NEUTROPENIA
     Route: 065
  3. ACYCLOVIR [Concomitant]
     Indication: ANTIVIRAL PROPHYLAXIS
     Route: 065
  4. LAXATIVE [Concomitant]
     Route: 065
  5. THALIDOMIDE [Suspect]
     Indication: MULTIPLE MYELOMA
     Dosage: 50-200 MG
     Route: 048
     Dates: start: 20040901, end: 20080801
  6. DEXAMETHASONE SODIUM PHOSPHATE [Concomitant]
     Indication: MULTIPLE MYELOMA
     Route: 065
     Dates: start: 20040901, end: 20080801

REACTIONS (17)
  - CONSTIPATION [None]
  - DEATH [None]
  - FATIGUE [None]
  - INFECTION [None]
  - ANAEMIA [None]
  - TOXICITY TO VARIOUS AGENTS [None]
  - THROMBOCYTOPENIA [None]
  - RASH [None]
  - MUSCLE SPASMS [None]
  - NEUTROPENIA [None]
  - MULTIPLE MYELOMA [None]
  - GASTROINTESTINAL PERFORATION [None]
  - NEUROPATHY PERIPHERAL [None]
  - NAUSEA [None]
  - ERYTHEMA [None]
  - DIZZINESS [None]
  - HEADACHE [None]
